FAERS Safety Report 24316631 (Version 1)
Quarter: 2024Q3

REPORT INFORMATION
  Report Type: Spontaneous
  Country: US (occurrence: US)
  Receive Date: 20240913
  Receipt Date: 20240913
  Transmission Date: 20241017
  Serious: Yes (Hospitalization, Other)
  Sender: PFIZER
  Company Number: US-PFIZER INC-202300260751

PATIENT
  Age: 58 Year
  Sex: Female
  Weight: 67.13 kg

DRUGS (3)
  1. OXBRYTA [Suspect]
     Active Substance: VOXELOTOR
     Indication: Sickle cell disease
     Dosage: 3 TABLETS
     Route: 048
     Dates: start: 202107
  2. OXBRYTA [Suspect]
     Active Substance: VOXELOTOR
     Dosage: TAKES ALL THREE BIG PILLS TOGETHER
     Route: 048
     Dates: end: 202401
  3. OXBRYTA [Suspect]
     Active Substance: VOXELOTOR
     Dosage: 3 TABLETS
     Route: 048
     Dates: start: 202405

REACTIONS (9)
  - Dizziness [Unknown]
  - Chronic kidney disease [Unknown]
  - Haemoglobin decreased [Not Recovered/Not Resolved]
  - Diarrhoea [Not Recovered/Not Resolved]
  - Cough [Not Recovered/Not Resolved]
  - Influenza [Not Recovered/Not Resolved]
  - Abdominal discomfort [Unknown]
  - Nausea [Unknown]
  - Pain [Unknown]

NARRATIVE: CASE EVENT DATE: 20210701
